FAERS Safety Report 12471176 (Version 2)
Quarter: 2016Q2

REPORT INFORMATION
  Report Type: Spontaneous
  Country: DE (occurrence: DE)
  Receive Date: 20160616
  Receipt Date: 20160627
  Transmission Date: 20160815
  Serious: Yes (Other)
  Sender: FDA-Public Use
  Company Number: DE-ENDO PHARMACEUTICALS INC.-2016-003898

PATIENT
  Age: 32 Year
  Sex: Male
  Weight: 58 kg

DRUGS (1)
  1. AVEED [Suspect]
     Active Substance: TESTOSTERONE UNDECANOATE
     Indication: PRODUCT USED FOR UNKNOWN INDICATION
     Route: 030
     Dates: start: 20160609

REACTIONS (2)
  - Product quality issue [Unknown]
  - Pulmonary oil microembolism [Recovered/Resolved]

NARRATIVE: CASE EVENT DATE: 20160609
